FAERS Safety Report 6936344-9 (Version None)
Quarter: 2010Q3

REPORT INFORMATION
  Report Type: 
  Country: None (occurrence: None)
  Receive Date: 20100818
  Receipt Date: 20100628
  Transmission Date: 20110219
  Serious: Yes (Hospitalization)
  Sender: FDA-Public Use
  Company Number: 011217

PATIENT
  Sex: Female
  Weight: 50.8029 kg

DRUGS (2)
  1. CIMZIA [Suspect]
     Indication: CROHN'S DISEASE
     Dosage: 400 MG 1X/4 WEEKS SUBCUTANEOUS
     Route: 058
     Dates: start: 20100422
  2. BENTYL [Concomitant]

REACTIONS (2)
  - ACUTE SINUSITIS [None]
  - MASTOIDITIS [None]
